FAERS Safety Report 9448495 (Version 1)
Quarter: 2013Q3

REPORT INFORMATION
  Report Type: Spontaneous
  Country: FR (occurrence: None)
  Receive Date: 20130806
  Receipt Date: 20130806
  Transmission Date: 20140515
  Serious: Yes (Other)
  Sender: FDA-Public Use
  Company Number: 1818988

PATIENT
  Age: 61 Year
  Sex: Female

DRUGS (1)
  1. GEMCITABINE HYDROCHLORIDE [Suspect]
     Indication: LUNG NEOPLASM MALIGNANT
     Dosage: /SQ METER (CYCLICAL),  (NOT OTHERWISE SPECIFIED)
     Route: 042
     Dates: start: 20130610, end: 20130617

REACTIONS (5)
  - Pain [None]
  - Chest pain [None]
  - Blood pressure systolic abnormal [None]
  - Abdominal pain [None]
  - Bone pain [None]
